FAERS Safety Report 5383087-1 (Version None)
Quarter: 2007Q3

REPORT INFORMATION
  Report Type: 
  Country: None (occurrence: None)
  Receive Date: 20070705
  Receipt Date: 20070620
  Transmission Date: 20080115
  Serious: Yes (Other)
  Sender: FDA-Public Use
  Company Number: 2007RR-08169

PATIENT
  Age: 58 Year
  Sex: Female

DRUGS (6)
  1. MINOCYCLINE HYDROCHLORIDE [Suspect]
     Indication: ACNE
     Dosage: 200 MG, QD
  2. TETRACYCLINE [Suspect]
     Indication: ACNE
     Dosage: SEE IMAGE
     Route: 048
  3. DOXYCYCLINE [Concomitant]
  4. ADAPALENE GEL [Concomitant]
  5. BENZOYL PEROXIDE GEL [Concomitant]
  6. METRONIDAZOLE [Concomitant]

REACTIONS (1)
  - OSTEOMA CUTIS [None]
